FAERS Safety Report 7817761-1 (Version None)
Quarter: 2011Q4

REPORT INFORMATION
  Report Type: 
  Country: None (occurrence: None)
  Receive Date: 20111017
  Receipt Date: 20111010
  Transmission Date: 20120403
  Serious: Yes (Other)
  Sender: FDA-Public Use
  Company Number: GB-JNJFOC-20110905176

PATIENT
  Sex: Female

DRUGS (4)
  1. ACETAMINOPHEN [Suspect]
     Route: 065
  2. ACETAMINOPHEN [Suspect]
     Indication: MIGRAINE
     Route: 065
  3. ACETAMINOPHEN AND CODEINE PHOSPHATE [Suspect]
     Indication: MIGRAINE
     Route: 048
  4. ALCOHOL [Suspect]
     Indication: PRODUCT USED FOR UNKNOWN INDICATION
     Route: 065

REACTIONS (5)
  - AGGRESSION [None]
  - AMNESIA [None]
  - SOMNOLENCE [None]
  - ABNORMAL BEHAVIOUR [None]
  - ALCOHOL INTERACTION [None]
